FAERS Safety Report 5722773-8 (Version None)
Quarter: 2008Q2

REPORT INFORMATION
  Report Type: 
  Country: None (occurrence: None)
  Receive Date: 20080429
  Receipt Date: 20080110
  Transmission Date: 20081010
  Serious: No
  Sender: FDA-Public Use
  Company Number: US-ASTRAZENECA-2008UW00648

PATIENT
  Age: 63 Year
  Sex: Female
  Weight: 58.1 kg

DRUGS (4)
  1. NEXIUM [Suspect]
     Indication: GASTROOESOPHAGEAL REFLUX DISEASE
     Route: 048
     Dates: start: 20071201
  2. EVISTA [Concomitant]
  3. AVAPRO [Concomitant]
  4. ACIPHEX [Concomitant]

REACTIONS (1)
  - ILL-DEFINED DISORDER [None]
